FAERS Safety Report 5422146-1 (Version None)
Quarter: 2007Q3

REPORT INFORMATION
  Report Type: 
  Country: None (occurrence: None)
  Receive Date: 20070821
  Receipt Date: 20070821
  Transmission Date: 20080115
  Serious: Yes (Death)
  Sender: FDA-Public Use
  Company Number: None

PATIENT
  Age: 21 Year
  Sex: Male
  Weight: 79.3795 kg

DRUGS (2)
  1. METHADONE HCL [Suspect]
     Indication: DRUG WITHDRAWAL SYNDROME
     Dosage: 40MG 2XS A DAY PO
     Route: 048
     Dates: start: 20070403, end: 20070404
  2. METHADONE HCL [Suspect]
     Dosage: 50MG 1 A DAY PO
     Route: 048
     Dates: start: 20070404, end: 20070405

REACTIONS (2)
  - DRUG TOXICITY [None]
  - INCORRECT DOSE ADMINISTERED [None]
